FAERS Safety Report 11246796 (Version 1)
Quarter: 2015Q3

REPORT INFORMATION
  Report Type: Spontaneous
  Country: AU (occurrence: AU)
  Receive Date: 20150708
  Receipt Date: 20150708
  Transmission Date: 20151125
  Serious: Yes (Other)
  Sender: FDA-Public Use
  Company Number: AU-HOSPIRA-2925734

PATIENT
  Age: 53 Year
  Sex: Female
  Weight: 129 kg

DRUGS (40)
  1. DEXAMETHASONE. [Suspect]
     Active Substance: DEXAMETHASONE
     Indication: BREAST CANCER
     Dosage: BD X 2 DAYS
     Route: 048
     Dates: start: 20120626
  2. SODIUM CHLORIDE. [Suspect]
     Active Substance: SODIUM CHLORIDE
     Indication: BREAST CANCER
     Route: 042
     Dates: start: 20120807
  3. DOCETAXEL. [Suspect]
     Active Substance: DOCETAXEL
     Indication: BREAST CANCER
     Route: 042
     Dates: start: 20120605
  4. DOCETAXEL. [Suspect]
     Active Substance: DOCETAXEL
     Indication: BREAST CANCER
     Route: 042
     Dates: start: 20120717
  5. DEXAMETHASONE. [Suspect]
     Active Substance: DEXAMETHASONE
     Indication: BREAST CANCER
     Route: 042
     Dates: start: 20120605
  6. GRANISETRON [Suspect]
     Active Substance: GRANISETRON
     Indication: BREAST CANCER
     Route: 042
     Dates: start: 20120717
  7. PEGFILGRASTIM [Suspect]
     Active Substance: PEGFILGRASTIM
     Indication: BREAST CANCER
     Dosage: ONCE X 1 DAY
     Route: 058
     Dates: start: 20120717
  8. THYROXIN [Concomitant]
     Active Substance: LEVOTHYROXINE
     Indication: HYPOTHYROIDISM
     Dosage: DAILY
  9. DEXAMETHASONE. [Suspect]
     Active Substance: DEXAMETHASONE
     Indication: BREAST CANCER
     Route: 042
     Dates: start: 20120626
  10. DEXAMETHASONE. [Suspect]
     Active Substance: DEXAMETHASONE
     Indication: BREAST CANCER
     Route: 042
     Dates: start: 20120717
  11. DEXAMETHASONE. [Suspect]
     Active Substance: DEXAMETHASONE
     Indication: BREAST CANCER
     Route: 042
     Dates: start: 20120807
  12. GRANISETRON [Suspect]
     Active Substance: GRANISETRON
     Indication: BREAST CANCER
     Route: 042
     Dates: start: 20120605
  13. GRANISETRON [Suspect]
     Active Substance: GRANISETRON
     Indication: BREAST CANCER
     Route: 042
     Dates: start: 20120626
  14. METOCLOPRAMIDE. [Suspect]
     Active Substance: METOCLOPRAMIDE
     Indication: BREAST CANCER
     Dosage: 10-20 MG, 4-6 HRLY X 5 DAYS
     Route: 048
     Dates: start: 20120626
  15. DEXAMETHASONE. [Suspect]
     Active Substance: DEXAMETHASONE
     Indication: BREAST CANCER
     Dosage: BD X 1 DAY
     Route: 048
     Dates: start: 20120806
  16. GRANISETRON [Suspect]
     Active Substance: GRANISETRON
     Indication: BREAST CANCER
     Route: 042
     Dates: start: 20120807
  17. ONDANSETRON [Suspect]
     Active Substance: ONDANSETRON
     Indication: BREAST CANCER
     Dosage: BD X 2 DAYS
     Route: 048
     Dates: start: 20120605
  18. ONDANSETRON [Suspect]
     Active Substance: ONDANSETRON
     Indication: BREAST CANCER
     Dosage: BD X 2 DAYS
     Route: 048
     Dates: start: 20120807
  19. METOCLOPRAMIDE. [Suspect]
     Active Substance: METOCLOPRAMIDE
     Indication: BREAST CANCER
     Dosage: 10-20 MG, 4-6 HRLY X 5 DAYS
     Route: 048
     Dates: start: 20120605
  20. METOCLOPRAMIDE. [Suspect]
     Active Substance: METOCLOPRAMIDE
     Indication: BREAST CANCER
     Dosage: 10-20 MG, 4-6 HRLY X 5 DAYS
     Route: 048
     Dates: start: 20120717
  21. DEXAMETHASONE. [Suspect]
     Active Substance: DEXAMETHASONE
     Indication: BREAST CANCER
     Dosage: BD X 2 DAYS
     Route: 048
     Dates: start: 20120605
  22. SODIUM CHLORIDE. [Suspect]
     Active Substance: SODIUM CHLORIDE
     Indication: BREAST CANCER
     Route: 042
     Dates: start: 20120626
  23. DOCETAXEL. [Suspect]
     Active Substance: DOCETAXEL
     Indication: BREAST CANCER
     Route: 042
     Dates: start: 20120626
  24. ONDANSETRON [Suspect]
     Active Substance: ONDANSETRON
     Indication: BREAST CANCER
     Dosage: BD X 2 DAYS
     Route: 048
     Dates: start: 20120717
  25. PEGFILGRASTIM [Suspect]
     Active Substance: PEGFILGRASTIM
     Indication: BREAST CANCER
     Dosage: ONCE X 1 DAY
     Route: 058
     Dates: start: 20120626
  26. DEXAMETHASONE. [Suspect]
     Active Substance: DEXAMETHASONE
     Indication: BREAST CANCER
     Dosage: BD X 2 DAYS
     Route: 048
     Dates: start: 20120807
  27. DOCETAXEL. [Suspect]
     Active Substance: DOCETAXEL
     Indication: BREAST CANCER
     Route: 042
     Dates: start: 20120807
  28. CYCLOPHOSPHAMIDE. [Suspect]
     Active Substance: CYCLOPHOSPHAMIDE
     Indication: BREAST CANCER
     Route: 042
     Dates: start: 20120717
  29. CYCLOPHOSPHAMIDE. [Suspect]
     Active Substance: CYCLOPHOSPHAMIDE
     Indication: BREAST CANCER
     Route: 042
     Dates: start: 20120807
  30. ONDANSETRON [Suspect]
     Active Substance: ONDANSETRON
     Indication: BREAST CANCER
     Dosage: BD X 2 DAYS
     Route: 048
     Dates: start: 20120626
  31. DEXAMETHASONE. [Suspect]
     Active Substance: DEXAMETHASONE
     Indication: BREAST CANCER
     Dosage: BD X 1 DAY
     Route: 048
     Dates: start: 20120625
  32. SODIUM CHLORIDE. [Suspect]
     Active Substance: SODIUM CHLORIDE
     Indication: BREAST CANCER
     Route: 042
     Dates: start: 20120605
  33. METOCLOPRAMIDE. [Suspect]
     Active Substance: METOCLOPRAMIDE
     Indication: BREAST CANCER
     Dosage: 10-20 MG, 4-6 HRLY X 5 DAYS
     Route: 048
     Dates: start: 20120807
  34. PEGFILGRASTIM [Suspect]
     Active Substance: PEGFILGRASTIM
     Indication: BREAST CANCER
     Dosage: ONCE X 1 DAY
     Route: 058
     Dates: start: 20120807
  35. CARBOPLATIN. [Suspect]
     Active Substance: CARBOPLATIN
     Indication: BREAST CANCER
  36. DEXAMETHASONE. [Suspect]
     Active Substance: DEXAMETHASONE
     Indication: BREAST CANCER
     Dosage: BD X 1 DAY
     Route: 048
     Dates: start: 20120716
  37. CYCLOPHOSPHAMIDE. [Suspect]
     Active Substance: CYCLOPHOSPHAMIDE
     Indication: BREAST CANCER
     Route: 042
     Dates: start: 20120605
  38. DEXAMETHASONE. [Suspect]
     Active Substance: DEXAMETHASONE
     Indication: BREAST CANCER
     Dosage: BD X 2 DAYS
     Route: 048
     Dates: start: 20120717
  39. SODIUM CHLORIDE. [Suspect]
     Active Substance: SODIUM CHLORIDE
     Indication: BREAST CANCER
     Route: 042
     Dates: start: 20120717
  40. CYCLOPHOSPHAMIDE. [Suspect]
     Active Substance: CYCLOPHOSPHAMIDE
     Indication: BREAST CANCER
     Route: 042
     Dates: start: 20120626

REACTIONS (2)
  - Vitamin B12 deficiency [Recovered/Resolved]
  - Neuropathy peripheral [Recovered/Resolved]

NARRATIVE: CASE EVENT DATE: 20120925
